FAERS Safety Report 11753648 (Version 2)
Quarter: 2016Q2

REPORT INFORMATION
  Report Type: Report from Study
  Country: DE (occurrence: DE)
  Receive Date: 20151119
  Receipt Date: 20160505
  Transmission Date: 20160815
  Serious: Yes (Life-Threatening, Hospitalization)
  Sender: FDA-Public Use
  Company Number: DE-BAYER-2015-458045

PATIENT
  Age: 74 Year
  Sex: Male
  Weight: 98 kg

DRUGS (22)
  1. CANDESARTAN CILEXETIL. [Concomitant]
     Active Substance: CANDESARTAN CILEXETIL
     Dosage: 32MG/DAILY
     Dates: start: 2012
  2. NOVALGIN [Concomitant]
     Active Substance: METAMIZOLE SODIUM
     Indication: BONE PAIN
     Dosage: 500 MG, 8ID
     Dates: start: 20150922
  3. XOFIGO [Suspect]
     Active Substance: RADIUM RA-223 DICHLORIDE
     Indication: PROSTATE CANCER STAGE IV
     Dosage: 4.7 MBQ, ONCE
     Route: 042
     Dates: start: 20150727, end: 20150727
  4. XOFIGO [Suspect]
     Active Substance: RADIUM RA-223 DICHLORIDE
     Indication: METASTASES TO BONE
     Dosage: 4.73 MBQ, ONCE
     Route: 042
     Dates: start: 20150831, end: 20150831
  5. ALLOPURINOL. [Concomitant]
     Active Substance: ALLOPURINOL
     Dosage: 100MG/DAILY
     Dates: start: 1998
  6. BEZAFIBRATE [Concomitant]
     Active Substance: BEZAFIBRATE
     Dosage: 400MG/DAILY
     Dates: start: 2006
  7. PANTOPRAZOLE [Concomitant]
     Active Substance: PANTOPRAZOLE SODIUM
     Dosage: 20MG/DAILY
     Dates: start: 2009
  8. METOHEXAL [Concomitant]
     Active Substance: METOPROLOL SUCCINATE
     Dosage: 47.5MG/DAILY
     Dates: start: 2005
  9. DICLOFENAC [Concomitant]
     Active Substance: DICLOFENAC
     Indication: BONE PAIN
     Dosage: 50 MG, QID
     Dates: start: 20150806, end: 20150922
  10. TRAMAL [Concomitant]
     Active Substance: TRAMADOL
     Dosage: 100 MG, BID
     Route: 048
     Dates: start: 20150922
  11. XGEVA [Concomitant]
     Active Substance: DENOSUMAB
     Indication: PROSTATE CANCER
     Dosage: 120 MG, Q1MON
     Dates: start: 2014
  12. TRENANTONE [Concomitant]
     Active Substance: LEUPROLIDE ACETATE
     Indication: PROSTATE CANCER
     Dosage: 11.25 MG, Q3MON
     Dates: start: 201312
  13. CARMEN [Concomitant]
     Active Substance: LERCANIDIPINE
     Dosage: 10 MG, BID
     Dates: start: 2010
  14. MAGNESIUM [MAGNESIUM] [Concomitant]
     Dosage: 400 MG, QD
     Dates: start: 2014
  15. TORASEMID [Concomitant]
     Active Substance: TORSEMIDE
     Dosage: 5MG/DAILY
     Dates: start: 2010
  16. XOFIGO [Suspect]
     Active Substance: RADIUM RA-223 DICHLORIDE
     Indication: PROSTATE CANCER STAGE IV
     Dosage: 4.61 MBQ, ONCE
     Route: 042
     Dates: start: 20150928, end: 20150928
  17. XOFIGO [Suspect]
     Active Substance: RADIUM RA-223 DICHLORIDE
     Indication: PROSTATE CANCER STAGE IV
     Dosage: 4.675 MBQ
     Route: 042
     Dates: start: 20151025, end: 20151025
  18. METFORMIN [Concomitant]
     Active Substance: METFORMIN HYDROCHLORIDE
     Dosage: 1000MG/DAILY
     Dates: start: 2000
  19. MARCUMAR [Concomitant]
     Active Substance: PHENPROCOUMON
     Dosage: 3MG/DAILY
     Dates: start: 2007
  20. SAROTEN [Concomitant]
     Active Substance: AMITRIPTYLINE
     Indication: DEPRESSION
     Dosage: 75MG/DAILY
     Dates: start: 20150922
  21. PANGROL [PANCREATIN] [Concomitant]
     Dosage: 40.000
     Dates: start: 2012
  22. SEVREDOL [Concomitant]
     Active Substance: MORPHINE
     Dosage: 10 MG, PRN
     Route: 048
     Dates: start: 20150922

REACTIONS (2)
  - Pancytopenia [Not Recovered/Not Resolved]
  - Pancytopenia [Recovered/Resolved]

NARRATIVE: CASE EVENT DATE: 20151020
